FAERS Safety Report 19279957 (Version 3)
Quarter: 2021Q2

REPORT INFORMATION
  Report Type: Report from Study
  Country: DE (occurrence: DE)
  Receive Date: 20210520
  Receipt Date: 20210526
  Transmission Date: 20210717
  Serious: Yes (Death, Life-Threatening, Hospitalization)
  Sender: FDA-Public Use
  Company Number: DE-EISAI MEDICAL RESEARCH-EC-2021-091052

PATIENT
  Age: 42 Year
  Sex: Male
  Weight: 51 kg

DRUGS (11)
  1. NOVALGIN [Concomitant]
     Indication: PAIN
     Dosage: 500 MG/ML
     Route: 048
     Dates: start: 20210105
  2. LENVATINIB [Suspect]
     Active Substance: LENVATINIB
     Indication: THYROID CANCER
     Route: 048
     Dates: start: 20200724, end: 20210406
  3. CLEXANE [Concomitant]
     Active Substance: ENOXAPARIN SODIUM
     Indication: THROMBOSIS
  4. CALCITRIOL. [Concomitant]
     Active Substance: CALCITRIOL
     Route: 048
     Dates: start: 20201130
  5. PARACODEINE N [Concomitant]
     Indication: COUGH
     Route: 048
     Dates: start: 20201016
  6. PEMBROLIZUMAB. [Suspect]
     Active Substance: PEMBROLIZUMAB
     Dates: start: 2021, end: 20210510
  7. L?THYROXINE [Concomitant]
     Active Substance: LEVOTHYROXINE
     Indication: THYROID DISORDER
     Route: 048
     Dates: start: 20210106
  8. PEMBROLIZUMAB. [Suspect]
     Active Substance: PEMBROLIZUMAB
     Indication: THYROID CANCER
     Dates: start: 20200814, end: 20210312
  9. LENVATINIB [Suspect]
     Active Substance: LENVATINIB
     Route: 048
     Dates: start: 202105, end: 20210514
  10. AMPHOMORONAL [Concomitant]
     Indication: PROPHYLAXIS
     Dosage: 100 MG/ML
     Route: 048
     Dates: start: 20200731
  11. CLEXANE [Concomitant]
     Active Substance: ENOXAPARIN SODIUM
     Indication: PROPHYLAXIS
     Route: 058
     Dates: start: 20201127

REACTIONS (2)
  - Haemorrhage [Fatal]
  - Ileus [Recovered/Resolved]

NARRATIVE: CASE EVENT DATE: 20210406
